FAERS Safety Report 6054061-7 (Version None)
Quarter: 2009Q1

REPORT INFORMATION
  Report Type: 
  Country: None (occurrence: None)
  Receive Date: 20090127
  Receipt Date: 20090115
  Transmission Date: 20090719
  Serious: Yes (Other)
  Sender: FDA-Public Use
  Company Number: US-PFIZER INC-2008101563

PATIENT
  Sex: Male

DRUGS (8)
  1. SUTENT [Suspect]
     Indication: RENAL CELL CARCINOMA
     Dosage: 50 MG, 1X/DAY
     Route: 048
     Dates: start: 20081001, end: 20081123
  2. LISINOPRIL [Suspect]
     Dates: end: 20081101
  3. ANALGESICS [Suspect]
     Indication: MIGRAINE
     Dates: start: 20081001
  4. AMITRIPTYLINE HCL [Concomitant]
  5. GEMFIBROZIL [Concomitant]
  6. LOVASTATIN [Concomitant]
  7. METFORMIN HCL [Concomitant]
  8. TEMAZEPAM [Concomitant]
     Indication: PAIN

REACTIONS (1)
  - HYPERSENSITIVITY [None]
